FAERS Safety Report 8619817-2 (Version None)
Quarter: 2012Q3

REPORT INFORMATION
  Report Type: 
  Country: None (occurrence: None)
  Receive Date: 20120824
  Receipt Date: 20120815
  Transmission Date: 20120928
  Serious: Yes (Other)
  Sender: FDA-Public Use
  Company Number: US-SANOFI-AVENTIS-2012SA059339

PATIENT
  Sex: Male

DRUGS (1)
  1. AMBIEN [Suspect]
     Route: 048
     Dates: start: 20120801

REACTIONS (3)
  - WRIST FRACTURE [None]
  - RADIAL NERVE PALSY [None]
  - ARTHRALGIA [None]
